FAERS Safety Report 7437125-2 (Version None)
Quarter: 2011Q2

REPORT INFORMATION
  Report Type: 
  Country: None (occurrence: None)
  Receive Date: 20110426
  Receipt Date: 20110412
  Transmission Date: 20111010
  Serious: Yes (Hospitalization, Other)
  Sender: FDA-Public Use
  Company Number: US-JNJFOC-20091102007

PATIENT
  Sex: Female
  Weight: 32.93 kg

DRUGS (24)
  1. INFLIXIMAB [Suspect]
     Route: 042
     Dates: start: 20060315, end: 20080103
  2. IRON [Concomitant]
     Route: 048
  3. ATIVAN [Concomitant]
  4. ACETAMINOPHEN W/ CODEINE [Concomitant]
  5. KEFLEX [Concomitant]
  6. AUGMENTIN [Concomitant]
  7. ANTIBIOTICS [Concomitant]
     Indication: INFLAMMATORY BOWEL DISEASE
  8. INFLIXIMAB [Suspect]
     Indication: INFLAMMATORY BOWEL DISEASE
     Route: 042
     Dates: start: 20060315, end: 20080103
  9. INFLIXIMAB [Suspect]
     Route: 042
     Dates: start: 20060315, end: 20080103
  10. PERCOCET [Concomitant]
     Route: 048
  11. NYSTATIN [Concomitant]
  12. ASPIRIN [Concomitant]
  13. ACETAMINOPHEN [Concomitant]
  14. KENALOG [Concomitant]
  15. PENTASA [Concomitant]
     Route: 048
  16. MULTI-VITAMINS [Concomitant]
  17. FLUCONAZOLE [Concomitant]
  18. OMEGA 3 FATTY ACIDS [Concomitant]
  19. ZINC SULFATE [Concomitant]
  20. HUMIRA [Concomitant]
  21. MESALAZINE [Concomitant]
     Indication: INFLAMMATORY BOWEL DISEASE
  22. KETOCONAZOLE [Concomitant]
  23. AUGMENTIN [Concomitant]
  24. AQUAPHOR [Concomitant]
     Route: 061

REACTIONS (4)
  - SEPTIC SHOCK [None]
  - DEVICE RELATED INFECTION [None]
  - ANAPHYLACTIC REACTION [None]
  - SURGERY [None]
